FAERS Safety Report 8387463-4 (Version None)
Quarter: 2012Q2

REPORT INFORMATION
  Report Type: 
  Country: None (occurrence: None)
  Receive Date: 20120525
  Receipt Date: 20120521
  Transmission Date: 20120825
  Serious: Yes (Hospitalization)
  Sender: FDA-Public Use
  Company Number: PHEH2012US006738

PATIENT
  Sex: Female
  Weight: 53.515 kg

DRUGS (4)
  1. FUROSEMIDE [Concomitant]
     Route: 048
  2. GILENYA [Suspect]
     Indication: MULTIPLE SCLEROSIS
     Dosage: 0.5 MG, QD
     Route: 048
     Dates: start: 20110623
  3. BACLOFEN [Concomitant]
     Route: 048
  4. FLONASE [Concomitant]
     Route: 045

REACTIONS (3)
  - INNER EAR DISORDER [None]
  - BALANCE DISORDER [None]
  - MULTIPLE SCLEROSIS RELAPSE [None]
